FAERS Safety Report 21651222 (Version 1)
Quarter: 2022Q4

REPORT INFORMATION
  Report Type: Other
  Country: CN (occurrence: CN)
  Receive Date: 20221128
  Receipt Date: 20221128
  Transmission Date: 20230112
  Serious: Yes (Life-Threatening, Other)
  Sender: FDA-Public Use
  Company Number: CN-GE HEALTHCARE-2022CSU008504

PATIENT
  Age: 68 Year
  Sex: Male
  Weight: 45 kg

DRUGS (3)
  1. OMNIPAQUE [Suspect]
     Active Substance: IOHEXOL
     Indication: Hepatic embolisation
     Dosage: 100 ML, SINGLE
     Route: 013
     Dates: start: 20221114, end: 20221114
  2. OMNIPAQUE [Suspect]
     Active Substance: IOHEXOL
     Indication: Imaging procedure
  3. OMNIPAQUE [Suspect]
     Active Substance: IOHEXOL
     Indication: Intra-abdominal haemorrhage

REACTIONS (7)
  - Aggression [Recovering/Resolving]
  - Tachypnoea [Recovering/Resolving]
  - Oxygen saturation decreased [Recovering/Resolving]
  - Confusional state [Recovering/Resolving]
  - Dysphoria [Recovering/Resolving]
  - Temperature intolerance [Recovering/Resolving]
  - Peripheral coldness [Recovering/Resolving]

NARRATIVE: CASE EVENT DATE: 20221114
